FAERS Safety Report 7564576-8 (Version None)
Quarter: 2011Q2

REPORT INFORMATION
  Report Type: 
  Country: None (occurrence: None)
  Receive Date: 20110622
  Receipt Date: 20110615
  Transmission Date: 20111010
  Serious: Yes (Other)
  Sender: FDA-Public Use
  Company Number: US-MYLANLABS-2010S1010192

PATIENT
  Age: 60 Year
  Sex: Male
  Weight: 82.1 kg

DRUGS (9)
  1. LAMICTAL [Concomitant]
  2. BUSPIRONE HCL [Concomitant]
  3. ZYPREXA [Concomitant]
  4. CLOZAPINE [Suspect]
     Dates: start: 20100817
  5. SERTRALINE HYDROCHLORIDE [Concomitant]
  6. DIVALPROEX SODIUM [Concomitant]
  7. PRAVASTATIN [Concomitant]
  8. CLOZAPINE [Suspect]
     Indication: SCHIZOPHRENIA
     Dates: end: 20100813
  9. SINGULAIR [Concomitant]

REACTIONS (1)
  - GRANULOCYTOPENIA [None]
